FAERS Safety Report 8371341-0 (Version None)
Quarter: 2012Q2

REPORT INFORMATION
  Report Type: 
  Country: None (occurrence: None)
  Receive Date: 20120518
  Receipt Date: 20120516
  Transmission Date: 20120825
  Serious: No
  Sender: FDA-Public Use
  Company Number: US-TEVA-338625USA

PATIENT
  Sex: Female
  Weight: 61.29 kg

DRUGS (1)
  1. PLAN B ONE-STEP [Suspect]
     Indication: POST COITAL CONTRACEPTION
     Dosage: 1.5 MILLIGRAM;
     Route: 048

REACTIONS (8)
  - URINARY TRACT INFECTION [None]
  - DIZZINESS [None]
  - BLOOD URINE PRESENT [None]
  - PELVIC PAIN [None]
  - NAUSEA [None]
  - BACK PAIN [None]
  - MENSTRUATION IRREGULAR [None]
  - HEADACHE [None]
